FAERS Safety Report 9834393 (Version 2)
Quarter: 2014Q1

REPORT INFORMATION
  Report Type: Spontaneous
  Country: US (occurrence: US)
  Receive Date: 20140122
  Receipt Date: 20140221
  Transmission Date: 20141002
  Serious: Yes (Other)
  Sender: FDA-Public Use
  Company Number: US-PURDUE-USA-2014-0110523

PATIENT
  Sex: Male
  Weight: 58.96 kg

DRUGS (2)
  1. OXYCONTIN (NDA 22-272) [Suspect]
     Indication: PRODUCT USED FOR UNKNOWN INDICATION
     Dosage: 160 MG, Q12H
     Route: 048
  2. OXYCODONE HYDROCHLORIDE (SIMILAR TO NDA 22-272) [Suspect]
     Indication: BREAKTHROUGH PAIN
     Dosage: 30 MG, PRN
     Route: 048

REACTIONS (8)
  - Spinal fracture [Unknown]
  - Paralysis [Unknown]
  - Road traffic accident [Unknown]
  - Fall [Unknown]
  - Sinusitis [Unknown]
  - Wrong technique in drug usage process [Unknown]
  - Intentional drug misuse [Unknown]
  - Pain [Unknown]
